FAERS Safety Report 25796384 (Version 2)
Quarter: 2025Q4

REPORT INFORMATION
  Report Type: Spontaneous
  Country: JP (occurrence: JP)
  Receive Date: 20250912
  Receipt Date: 20251003
  Transmission Date: 20260118
  Serious: Yes (Other)
  Sender: MERCK SHARP & DOHME LLC
  Company Number: JP-009507513-2327549

PATIENT
  Age: 7 Decade
  Sex: Male

DRUGS (4)
  1. KEYTRUDA [Suspect]
     Active Substance: PEMBROLIZUMAB
     Indication: Clear cell renal cell carcinoma
     Route: 065
  2. LENVIMA [Suspect]
     Active Substance: LENVATINIB
     Indication: Clear cell renal cell carcinoma
     Route: 065
  3. LENVIMA [Suspect]
     Active Substance: LENVATINIB
     Indication: Clear cell renal cell carcinoma
     Route: 065
  4. DENOSUMAB [Concomitant]
     Active Substance: DENOSUMAB

REACTIONS (7)
  - Immune-mediated enterocolitis [Unknown]
  - Malignant neoplasm progression [Unknown]
  - Incorrect dose administered [Unknown]
  - Hypothyroidism [Recovering/Resolving]
  - Rash [Recovering/Resolving]
  - Renal disorder [Recovering/Resolving]
  - Haematochezia [Unknown]
